FAERS Safety Report 9458603 (Version 1)
Quarter: 2013Q3

REPORT INFORMATION
  Report Type: Spontaneous
  Country: US (occurrence: US)
  Receive Date: 20130814
  Receipt Date: 20130814
  Transmission Date: 20140515
  Serious: Yes (Other)
  Sender: FDA-Public Use
  Company Number: US-ASTRAZENECA-2013SE61366

PATIENT
  Age: 73 Year
  Sex: Female
  Weight: 65.3 kg

DRUGS (3)
  1. NEXIUM [Suspect]
     Indication: GASTROOESOPHAGEAL REFLUX DISEASE
     Route: 048
  2. SYMBICORT [Suspect]
     Indication: CHRONIC OBSTRUCTIVE PULMONARY DISEASE
     Dosage: 160/4.5, TWO PUFFS BID
     Route: 055
  3. SYMBICORT [Suspect]
     Indication: ASTHMA
     Dosage: 160/4.5, TWO PUFFS BID
     Route: 055

REACTIONS (4)
  - Ulnar tunnel syndrome [Recovered/Resolved with Sequelae]
  - Impaired work ability [Unknown]
  - Intentional drug misuse [Unknown]
  - Intentional drug misuse [Unknown]
